FAERS Safety Report 8793501 (Version 1)
Quarter: 2012Q4

REPORT INFORMATION
  Report Type: 
  Country: TH (occurrence: TH)
  Receive Date: 20120918
  Receipt Date: 20120918
  Transmission Date: 20130627
  Serious: Yes (Death, Hospitalization)
  Sender: FDA-Public Use
  Company Number: PHHY2004TH005651

PATIENT
  Sex: Female

DRUGS (1)
  1. GLIVEC [Suspect]
     Dates: start: 20040713

REACTIONS (8)
  - Myocardial ischaemia [Fatal]
  - Myocardial infarction [Fatal]
  - Gastrointestinal haemorrhage [Fatal]
  - Neutropenia [Unknown]
  - Anaemia [Unknown]
  - Fluid retention [Unknown]
  - Oedema [Unknown]
  - Upper gastrointestinal haemorrhage [None]
